FAERS Safety Report 4603387-X (Version None)
Quarter: 2005Q1

REPORT INFORMATION
  Report Type: 
  Country: None (occurrence: None)
  Receive Date: 20050308
  Receipt Date: 20050207
  Transmission Date: 20050727
  Serious: No
  Sender: FDA-Public Use
  Company Number: 2005-125594-NL

PATIENT
  Age: 14 Year
  Sex: Female

DRUGS (1)
  1. NUVARING [Suspect]
     Indication: CONTRACEPTION
     Dosage: DF
     Dates: end: 20041220

REACTIONS (2)
  - GENITAL PRURITUS FEMALE [None]
  - VAGINAL PAIN [None]
